FAERS Safety Report 9017096 (Version 3)
Quarter: 2013Q1

REPORT INFORMATION
  Report Type: Spontaneous
  Country: US (occurrence: US)
  Receive Date: 20130117
  Receipt Date: 20130219
  Transmission Date: 20140127
  Serious: Yes (Other)
  Sender: FDA-Public Use
  Company Number: US-009507513-1301USA006207

PATIENT
  Age: 38 Year
  Sex: Male

DRUGS (3)
  1. ASMANEX TWISTHALER [Suspect]
     Indication: ASTHMA
     Dosage: 1 INHALATION DAILY
     Route: 055
     Dates: start: 20130107, end: 20130108
  2. METFORMIN [Concomitant]
  3. GLIMEPIRIDE [Concomitant]

REACTIONS (3)
  - Local swelling [Recovering/Resolving]
  - Urticaria [Not Recovered/Not Resolved]
  - Lip swelling [Recovering/Resolving]
